FAERS Safety Report 11078974 (Version 1)
Quarter: 2015Q2

REPORT INFORMATION
  Report Type: Spontaneous
  Country: US (occurrence: None)
  Receive Date: 20150429
  Receipt Date: 20150429
  Transmission Date: 20150821
  Serious: No
  Sender: FDA-Public Use
  Company Number: None

PATIENT
  Age: 58 Year
  Sex: Male

DRUGS (1)
  1. ZYTIGA [Suspect]
     Active Substance: ABIRATERONE ACETATE
     Dosage: STRENGTH: 250
     Dates: start: 20150324

REACTIONS (2)
  - Neuropathy peripheral [None]
  - Oedema peripheral [None]

NARRATIVE: CASE EVENT DATE: 20150422
